FAERS Safety Report 7065532-9 (Version None)
Quarter: 2010Q4

REPORT INFORMATION
  Report Type: 
  Country: None (occurrence: None)
  Receive Date: 20101027
  Receipt Date: 20101019
  Transmission Date: 20110411
  Serious: Yes (Life-Threatening)
  Sender: FDA-Public Use
  Company Number: IT-ROCHE-734629

PATIENT
  Sex: Female

DRUGS (6)
  1. AVASTIN [Suspect]
     Indication: COLON CANCER
     Dosage: FREQUENCY: CYCLE.
     Route: 042
     Dates: start: 20100907, end: 20100921
  2. ELOXATIN [Concomitant]
     Indication: COLON CANCER
     Route: 042
     Dates: start: 20100809, end: 20100921
  3. FLUOROURACIL [Concomitant]
     Indication: COLON CANCER
     Route: 042
     Dates: start: 20100809, end: 20100921
  4. LEVOFOLENE [Concomitant]
     Indication: COLON CANCER
     Route: 042
     Dates: start: 20100809, end: 20100921
  5. OLPRESS [Concomitant]
     Route: 048
     Dates: start: 20100614, end: 20101013
  6. LANSOX [Concomitant]
     Route: 048
     Dates: start: 20100809, end: 20101013

REACTIONS (1)
  - AORTIC DISSECTION [None]
